FAERS Safety Report 9076605 (Version 1)
Quarter: 2013Q1

REPORT INFORMATION
  Report Type: Report from Study
  Country: US (occurrence: US)
  Receive Date: 20130129
  Receipt Date: 20130129
  Transmission Date: 20140127
  Serious: Yes (Other)
  Sender: FDA-Public Use
  Company Number: US-ABBOTT-12P-163-0935430-00

PATIENT
  Age: 61 None
  Sex: Female
  Weight: 99.88 kg

DRUGS (10)
  1. HUMIRA 40 MG/0.8 ML PEN [Suspect]
     Indication: PSORIASIS
     Dates: start: 2007, end: 2010
  2. HUMIRA 40 MG/0.8 ML PEN [Suspect]
     Dates: start: 2010, end: 201106
  3. VICTOSA [Concomitant]
     Indication: DIABETES MELLITUS
  4. VICTOSA [Concomitant]
  5. METFORMIN [Concomitant]
     Indication: DIABETES MELLITUS
  6. CRESTOR [Concomitant]
     Indication: HYPERLIPIDAEMIA
  7. AVALIDE [Concomitant]
     Indication: PRODUCT USED FOR UNKNOWN INDICATION
  8. NATEGLINIDE [Concomitant]
     Indication: PRODUCT USED FOR UNKNOWN INDICATION
  9. AMLODIPINE [Concomitant]
     Indication: HYPERTENSION
  10. GEMFIBRIZOL [Concomitant]
     Indication: HYPERLIPIDAEMIA

REACTIONS (3)
  - Invasive ductal breast carcinoma [Recovering/Resolving]
  - Injection site pain [Not Recovered/Not Resolved]
  - Psoriasis [Not Recovered/Not Resolved]
